FAERS Safety Report 8070893-8 (Version None)
Quarter: 2011Q4

REPORT INFORMATION
  Report Type: 
  Country: None (occurrence: None)
  Receive Date: 20111221
  Receipt Date: 20110211
  Transmission Date: 20120403
  Serious: Yes (Other)
  Sender: FDA-Public Use
  Company Number: PHHY2010US68865

PATIENT
  Age: 68 Year
  Sex: Male

DRUGS (3)
  1. CAMPATH (ALEMTUZUMAB, CAMPATH-1H) [Concomitant]
  2. CHEMOTHERAPEUTICS NOS (NO INGREDIENTS/SUBSTANCES) [Concomitant]
  3. EXJADE [Suspect]
     Dosage: 1500 MG, QD, ORAL
     Route: 048

REACTIONS (3)
  - HAEMATOCRIT DECREASED [None]
  - PLATELET COUNT DECREASED [None]
  - HAEMOGLOBIN DECREASED [None]
